FAERS Safety Report 4860199-X (Version None)
Quarter: 2005Q4

REPORT INFORMATION
  Report Type: 
  Country: None (occurrence: None)
  Receive Date: 20051219
  Receipt Date: 20051209
  Transmission Date: 20060501
  Serious: Yes (Other)
  Sender: FDA-Public Use
  Company Number: CA-BRISTOL-MYERS SQUIBB COMPANY-13217955

PATIENT
  Age: 80 Year
  Sex: Female

DRUGS (12)
  1. TEQUIN [Suspect]
     Route: 048
  2. PREDNISONE TAB [Suspect]
     Route: 048
  3. DIGOXIN [Concomitant]
  4. DILTIAZEM [Concomitant]
  5. FUROSEMIDE [Concomitant]
     Route: 048
  6. INHIBACE [Concomitant]
  7. LOSEC [Concomitant]
  8. METOPROLOL [Concomitant]
     Route: 048
  9. NEXIUM [Concomitant]
  10. SALBUTAMOL [Concomitant]
     Route: 055
  11. SALMETEROL [Concomitant]
     Route: 055
  12. WARFARIN [Concomitant]

REACTIONS (1)
  - HYPERGLYCAEMIA [None]
